FAERS Safety Report 7791518-2 (Version None)
Quarter: 2011Q4

REPORT INFORMATION
  Report Type: 
  Country: None (occurrence: None)
  Receive Date: 20111003
  Receipt Date: 20110920
  Transmission Date: 20120403
  Serious: Yes (Hospitalization)
  Sender: FDA-Public Use
  Company Number: US-BAYER-2011-050349

PATIENT
  Age: 28 Year
  Sex: Female
  Weight: 118.1 kg

DRUGS (6)
  1. ZOFRAN [Concomitant]
     Dosage: 4 MG, UNK
  2. YASMIN [Suspect]
     Indication: CONTRACEPTION
     Dosage: UNK
     Dates: start: 20020101, end: 20080101
  3. ERYTHROMYCIN [Concomitant]
     Dosage: 500 MG, TID
  4. IBUPROFEN [Concomitant]
     Dosage: 400 MG, PRN
  5. YAZ [Suspect]
     Indication: CONTRACEPTION
     Dosage: UNK
     Dates: start: 20020101, end: 20080101
  6. METFORMIN HCL [Concomitant]
     Dosage: 500 MG, BID

REACTIONS (3)
  - GALLBLADDER DISORDER [None]
  - PAIN [None]
  - CHOLECYSTITIS ACUTE [None]
